FAERS Safety Report 9837479 (Version 4)
Quarter: 2014Q2

REPORT INFORMATION
  Report Type: Report from Study
  Country: US (occurrence: US)
  Receive Date: 20140123
  Receipt Date: 20140430
  Transmission Date: 20141212
  Serious: Yes (Hospitalization)
  Sender: FDA-Public Use
  Company Number: US-JNJFOC-20140110563

PATIENT
  Age: 10 Year
  Sex: Female
  Weight: 47.63 kg

DRUGS (4)
  1. REMICADE [Suspect]
     Indication: INFLAMMATORY BOWEL DISEASE
     Route: 042
     Dates: start: 20120501, end: 20120605
  2. HUMIRA [Concomitant]
     Indication: INFLAMMATORY BOWEL DISEASE
     Route: 065
     Dates: start: 20120615, end: 201307
  3. 6-MERCAPTOPURINE [Concomitant]
     Route: 065
  4. 5-ASA [Concomitant]
     Route: 065

REACTIONS (1)
  - Meningitis borrelia [Recovered/Resolved]
